APPROVED DRUG PRODUCT: VORICONAZOLE
Active Ingredient: VORICONAZOLE
Strength: 50MG
Dosage Form/Route: TABLET;ORAL
Application: A206837 | Product #001 | TE Code: AB
Applicant: AUROBINDO PHARMA LTD
Approved: Jan 22, 2016 | RLD: No | RS: No | Type: RX